FAERS Safety Report 6189661-7 (Version None)
Quarter: 2009Q2

REPORT INFORMATION
  Report Type: 
  Country: None (occurrence: None)
  Receive Date: 20090514
  Receipt Date: 20090504
  Transmission Date: 20091009
  Serious: Yes (Hospitalization)
  Sender: FDA-Public Use
  Company Number: IT-ELI_LILLY_AND_COMPANY-IT200903007795

PATIENT
  Age: 70 Year
  Sex: Female

DRUGS (5)
  1. ZYPREXA [Suspect]
     Indication: SCHIZOAFFECTIVE DISORDER
     Dosage: 5 MG, DAILY (1/D)
     Dates: start: 20070715
  2. ZYPREXA [Suspect]
     Dosage: 10 MG, DAILY (1/D)
     Dates: end: 20090316
  3. CIPRALEX [Concomitant]
     Dosage: 10 MG, DAILY (1/D)
  4. CIPRALEX [Concomitant]
     Dosage: 15 MG, DAILY (1/D)
     Dates: end: 20090317
  5. BIPERIDEN HYDROCHLORIDE TAB [Concomitant]

REACTIONS (1)
  - PULMONARY EMBOLISM [None]
